FAERS Safety Report 8990862 (Version 1)
Quarter: 2012Q4

REPORT INFORMATION
  Report Type: Spontaneous
  Country: US (occurrence: None)
  Receive Date: 20121221
  Receipt Date: 20121221
  Transmission Date: 20130627
  Serious: Yes (Other)
  Sender: FDA-Public Use
  Company Number: FK201203914

PATIENT
  Age: 74 Year
  Sex: Female
  Weight: 80.29 kg

DRUGS (2)
  1. DEXAMETHASONE [Suspect]
     Dosage: 12 mg, d1, 2 q28d x 4 cycles, Oral
     Route: 048
     Dates: start: 20120731, end: 20121020
  2. BENDAMUSTINE [Suspect]
     Dosage: 90 mg/m2, d1, 2 q 28 d x 4 cycles, Intravenous (not otherwise specified)
     Route: 042
     Dates: start: 20120731, end: 20121020

REACTIONS (1)
  - Foot fracture [None]
